FAERS Safety Report 5740155-X (Version None)
Quarter: 2008Q2

REPORT INFORMATION
  Report Type: 
  Country: None (occurrence: None)
  Receive Date: 20080516
  Receipt Date: 20080506
  Transmission Date: 20081010
  Serious: No
  Sender: FDA-Public Use
  Company Number: BR-ROCHE-563181

PATIENT
  Age: 26 Year
  Sex: Female
  Weight: 50 kg

DRUGS (1)
  1. ROACUTAN [Suspect]
     Indication: ACNE
     Route: 048
     Dates: end: 20080503

REACTIONS (2)
  - NO ADVERSE EVENT [None]
  - PREGNANCY [None]
